FAERS Safety Report 5428748-0 (Version None)
Quarter: 2007Q3

REPORT INFORMATION
  Report Type: 
  Country: None (occurrence: None)
  Receive Date: 20070829
  Receipt Date: 20070822
  Transmission Date: 20080115
  Serious: Yes (Other)
  Sender: FDA-Public Use
  Company Number: PHBS2005US16786

PATIENT
  Age: 57 Year
  Sex: Male

DRUGS (1)
  1. LAMISIL [Suspect]
     Indication: NAIL TINEA
     Route: 065

REACTIONS (9)
  - ALDOLASE INCREASED [None]
  - ANTINUCLEAR ANTIBODY POSITIVE [None]
  - BLOOD CREATINE PHOSPHOKINASE INCREASED [None]
  - DERMATOMYOSITIS [None]
  - DYSPNOEA [None]
  - MUSCULAR WEAKNESS [None]
  - PHOTOSENSITIVITY REACTION [None]
  - SKIN DYSTROPHY [None]
  - SKIN NECROSIS [None]
